FAERS Safety Report 6044533-3 (Version None)
Quarter: 2009Q1

REPORT INFORMATION
  Report Type: 
  Country: None (occurrence: None)
  Receive Date: 20090120
  Receipt Date: 20090114
  Transmission Date: 20090719
  Serious: Yes (Hospitalization)
  Sender: FDA-Public Use
  Company Number: US-ASTRAZENECA-2009UW01240

PATIENT
  Age: 54 Year
  Sex: Female
  Weight: 63.5 kg

DRUGS (8)
  1. SEROQUEL [Suspect]
     Indication: SLEEP DISORDER
     Route: 048
  2. CYMBALTA [Concomitant]
     Dosage: 60 MG
  3. REMERON [Concomitant]
     Dosage: 30 MG DAILY, 60 MG AT BEDTIME
  4. TAMAZIPAM [Concomitant]
  5. CLONAZEPAM [Concomitant]
     Dosage: 2 MG 4TIMES A DAY AS NEEDED
  6. BACLOFEN [Concomitant]
  7. LORTAB [Concomitant]
     Dosage: EVERY 6 HOURS
  8. AMITRIPTYLINE HCL [Concomitant]

REACTIONS (3)
  - INCOHERENT [None]
  - INSOMNIA [None]
  - MUSCLE SPASMS [None]
